FAERS Safety Report 15298542 (Version 1)
Quarter: 2018Q4

REPORT INFORMATION
  Report Type: Spontaneous
  Country: KR (occurrence: KR)
  Receive Date: 20180820
  Receipt Date: 20180820
  Transmission Date: 20190204
  Serious: Yes (Hospitalization, Other)
  Sender: FDA-Public Use
  Company Number: KR-NAPPMUNDI-GBR-2014-0017996

PATIENT
  Sex: Male

DRUGS (1)
  1. OXYNORM INJECTION [Suspect]
     Active Substance: OXYCODONE HYDROCHLORIDE
     Indication: PRODUCT USED FOR UNKNOWN INDICATION

REACTIONS (3)
  - Intestinal obstruction [Unknown]
  - Urinary retention [Unknown]
  - Dyspnoea [Recovered/Resolved]
